FAERS Safety Report 10192889 (Version 1)
Quarter: 2014Q2

REPORT INFORMATION
  Report Type: Spontaneous
  Country: CN (occurrence: CN)
  Receive Date: 20140523
  Receipt Date: 20140523
  Transmission Date: 20141212
  Serious: Yes (Other)
  Sender: FDA-Public Use
  Company Number: CN-B.I. PHARMACEUTICALS,INC./RIDGEFIELD-2014-BI-23060YA

PATIENT
  Age: 82 Year
  Sex: Male

DRUGS (1)
  1. HARNAL [Suspect]
     Indication: BENIGN PROSTATIC HYPERPLASIA
     Dosage: 0.2 MG
     Route: 048
     Dates: start: 20130724, end: 20130729

REACTIONS (1)
  - Oedema peripheral [Not Recovered/Not Resolved]
